FAERS Safety Report 23044828 (Version 4)
Quarter: 2024Q3

REPORT INFORMATION
  Report Type: Spontaneous
  Country: US (occurrence: US)
  Receive Date: 20231009
  Receipt Date: 20240904
  Transmission Date: 20241016
  Serious: No
  Sender: PFIZER
  Company Number: US-PFIZER INC-PV202300154129

PATIENT
  Age: 64 Year
  Sex: Female
  Weight: 117.93 kg

DRUGS (3)
  1. IBRANCE [Suspect]
     Active Substance: PALBOCICLIB
     Indication: Breast cancer female
     Dosage: 125 MG, CYCLIC (TAKE 1 PO DAILY WITH FOOD, TAKE FOR 21 DAYS, OFF FOR 7 DAYS AND REPEAT)
     Dates: start: 20221117
  2. IBRANCE [Suspect]
     Active Substance: PALBOCICLIB
     Indication: Breast abscess
     Dosage: 100 MG, CYCLIC (ONCE FOR 21 DAYS AND THEN OFF FOR 7)
  3. LETROZOLE [Concomitant]
     Active Substance: LETROZOLE
     Dosage: UNK
     Dates: start: 20221117

REACTIONS (3)
  - Tumour marker increased [Unknown]
  - Gastrointestinal disorder [Not Recovered/Not Resolved]
  - Anaemia [Unknown]
